FAERS Safety Report 13011213 (Version 12)
Quarter: 2021Q1

REPORT INFORMATION
  Report Type: Spontaneous
  Country: BR (occurrence: BR)
  Receive Date: 20161208
  Receipt Date: 20210303
  Transmission Date: 20210419
  Serious: Yes (Other)
  Sender: FDA-Public Use
  Company Number: BR-AMGEN-BRASP2016128592

PATIENT
  Age: 65 Year
  Sex: Female
  Weight: 73 kg

DRUGS (10)
  1. ALENIA [BUDESONIDE;FORMOTEROL FUMARATE] [Concomitant]
     Active Substance: BUDESONIDE\FORMOTEROL FUMARATE
     Indication: ASTHMA
     Dosage: UNK
     Dates: start: 20140519
  2. ENBREL [Suspect]
     Active Substance: ETANERCEPT
     Indication: RHEUMATOID ARTHRITIS
     Dosage: UNK
     Route: 065
  3. ENBREL [Suspect]
     Active Substance: ETANERCEPT
     Indication: ARTHRALGIA
     Dosage: 50 MG, WEEKLY
     Route: 058
     Dates: start: 20160615
  4. ENBREL [Suspect]
     Active Substance: ETANERCEPT
     Dosage: 50 MG, ONCE A WEEK
     Route: 065
  5. LEFLUNOMIDE. [Concomitant]
     Active Substance: LEFLUNOMIDE
     Dosage: UNK
  6. ENBREL [Suspect]
     Active Substance: ETANERCEPT
     Dosage: 50 MILLIGRAM, QWK
     Route: 065
  7. ENBREL [Suspect]
     Active Substance: ETANERCEPT
     Dosage: UNK
     Route: 065
  8. OSCAL D [CALCIUM CARBONATE;COLECALCIFEROL] [Concomitant]
     Dosage: UNK
  9. TEOLONG [Concomitant]
     Indication: ASTHMATIC CRISIS
     Dosage: UNK
  10. ENBREL [Suspect]
     Active Substance: ETANERCEPT
     Indication: ARTHRALGIA
     Dosage: 50 MG, WEEKLY
     Route: 058
     Dates: start: 201605

REACTIONS (32)
  - Ingrowing nail [Unknown]
  - Feeling cold [Unknown]
  - Injection site pain [Recovered/Resolved]
  - Chikungunya virus infection [Not Recovered/Not Resolved]
  - Injection site discolouration [Unknown]
  - Neck pain [Recovered/Resolved]
  - Animal bite [Recovered/Resolved]
  - Asthmatic crisis [Recovered/Resolved]
  - Pneumonia [Recovered/Resolved]
  - Product administration error [Recovered/Resolved]
  - Memory impairment [Not Recovered/Not Resolved]
  - Pyrexia [Recovered/Resolved]
  - COVID-19 [Unknown]
  - Vertigo [Unknown]
  - Incorrect route of product administration [Recovered/Resolved]
  - Injection site haemorrhage [Unknown]
  - Drug ineffective [Unknown]
  - Meningioma [Unknown]
  - Asthenia [Unknown]
  - Disease recurrence [Recovered/Resolved]
  - Arthritis [Recovered/Resolved]
  - Haemorrhage [Unknown]
  - Pain in extremity [Unknown]
  - Cerebral disorder [Unknown]
  - Labyrinthitis [Unknown]
  - Pain [Unknown]
  - Product storage error [Recovered/Resolved]
  - Hyperhidrosis [Unknown]
  - Wrong technique in product usage process [Recovered/Resolved]
  - Dizziness [Unknown]
  - Obstructive airways disorder [Not Recovered/Not Resolved]
  - Forced vital capacity decreased [Not Recovered/Not Resolved]

NARRATIVE: CASE EVENT DATE: 2016
